FAERS Safety Report 6389768 (Version 4)
Quarter: 2014Q4

REPORT INFORMATION
  Report Type: Report from Study
  Country: US (occurrence: US)
  Receive Date: 20070816
  Receipt Date: 20141208
  Transmission Date: 20150529
  Serious: Yes (Other)
  Sender: FDA-Public Use
  Company Number: 2007BI016826

PATIENT
  Age: 64 Year
  Sex: Female

DRUGS (9)
  1. FORTEO [Concomitant]
     Active Substance: TERIPARATIDE
     Route: 058
     Dates: start: 20130104
  2. VITAMIN D [Concomitant]
     Active Substance: CHOLECALCIFEROL
     Route: 048
  3. SUMATRIPTAN. [Concomitant]
     Active Substance: SUMATRIPTAN
     Route: 048
     Dates: start: 20100119
  4. ADVIL [Concomitant]
     Active Substance: IBUPROFEN
     Indication: PREMEDICATION
     Route: 048
  5. AVONEX [Suspect]
     Active Substance: INTERFERON BETA-1A
     Indication: RELAPSING-REMITTING MULTIPLE SCLEROSIS
     Route: 030
     Dates: start: 20101124
  6. LUNESTA [Concomitant]
     Active Substance: ESZOPICLONE
     Route: 048
     Dates: start: 20121023
  7. AVONEX [Suspect]
     Active Substance: INTERFERON BETA-1A
     Indication: RELAPSING-REMITTING MULTIPLE SCLEROSIS
     Route: 030
     Dates: start: 19990701
  8. CALCIUM + VIT D [Concomitant]
     Active Substance: CALCIUM\VITAMIN D
     Route: 048
     Dates: start: 20140103
  9. VALACYCLOVIR [Concomitant]
     Active Substance: VALACYCLOVIR HYDROCHLORIDE
     Route: 048
     Dates: start: 20100528

REACTIONS (3)
  - Post procedural swelling [Unknown]
  - Breast cancer [Unknown]
  - Squamous cell carcinoma of skin [Not Recovered/Not Resolved]

NARRATIVE: CASE EVENT DATE: 200708
